FAERS Safety Report 13035701 (Version 1)
Quarter: 2016Q4

REPORT INFORMATION
  Report Type: Spontaneous
  Country: FR (occurrence: FR)
  Receive Date: 20161216
  Receipt Date: 20161216
  Transmission Date: 20170207
  Serious: Yes (Other)
  Sender: FDA-Public Use
  Company Number: FR-SA-2016SA002778

PATIENT
  Sex: Female

DRUGS (1)
  1. FABRAZYME [Suspect]
     Active Substance: AGALSIDASE BETA
     Indication: FABRY^S DISEASE
     Dosage: DOSE: 2 DF
     Route: 041
     Dates: start: 20130104, end: 20151230

REACTIONS (10)
  - Serum sickness [Recovered/Resolved]
  - Dysarthria [Recovered/Resolved]
  - Chest pain [Recovered/Resolved]
  - Angioedema [Recovered/Resolved]
  - Hyperthermia [Recovered/Resolved]
  - Chest discomfort [Recovered/Resolved]
  - Hypersensitivity [Recovered/Resolved]
  - Rash erythematous [Recovered/Resolved]
  - Dysphonia [Recovered/Resolved]
  - Rash [Recovered/Resolved]

NARRATIVE: CASE EVENT DATE: 20151230
